FAERS Safety Report 9270966 (Version 1)
Quarter: 2013Q2

REPORT INFORMATION
  Report Type: Spontaneous
  Country: US (occurrence: US)
  Receive Date: 20130506
  Receipt Date: 20130506
  Transmission Date: 20140414
  Serious: No
  Sender: FDA-Public Use
  Company Number: US-009507513-1305USA001273

PATIENT
  Age: 42 Year
  Sex: Male

DRUGS (1)
  1. DULERA [Suspect]
     Indication: ASTHMA
     Dosage: 200 MCG /50 MCG, BID
     Route: 055
     Dates: end: 201301

REACTIONS (1)
  - Dysphonia [Recovered/Resolved]
